FAERS Safety Report 7084601-0 (Version None)
Quarter: 2010Q4

REPORT INFORMATION
  Report Type: 
  Country: None (occurrence: None)
  Receive Date: 20101104
  Receipt Date: 20101025
  Transmission Date: 20110411
  Serious: Yes (Other)
  Sender: FDA-Public Use
  Company Number: PHHY2010CA69243

PATIENT
  Sex: Female

DRUGS (4)
  1. ACLASTA [Suspect]
     Indication: OSTEOPOROSIS
     Dosage: 5 MG
     Route: 042
     Dates: start: 20091001
  2. SYNTHROID [Concomitant]
     Dosage: .100 MG, QD
     Dates: start: 20020101
  3. PANTOLOC [Concomitant]
     Dosage: 40 MG, QD
     Dates: start: 20040101
  4. CRESTOR [Concomitant]
     Dosage: 5 MG, QD
     Dates: start: 20101008

REACTIONS (6)
  - ATRIAL FIBRILLATION [None]
  - DIZZINESS [None]
  - DYSPNOEA [None]
  - EXTRASYSTOLES [None]
  - HEART RATE IRREGULAR [None]
  - TREMOR [None]
